FAERS Safety Report 20364062 (Version 3)
Quarter: 2022Q2

REPORT INFORMATION
  Report Type: Spontaneous
  Country: VN (occurrence: VN)
  Receive Date: 20220121
  Receipt Date: 20220616
  Transmission Date: 20220720
  Serious: Yes (Other)
  Sender: FDA-Public Use
  Company Number: VN-NOVARTISPH-NVSC2022VN012014

PATIENT

DRUGS (9)
  1. OXALIPLATIN [Suspect]
     Active Substance: OXALIPLATIN
     Indication: Gastric cancer
     Dosage: 100 MG/M2, DAY 1 WITHIN 2 HOURS, CYCLIC (21 DAYS)
     Route: 042
     Dates: start: 20191122, end: 20200420
  2. OXALIPLATIN [Suspect]
     Active Substance: OXALIPLATIN
     Indication: Chemotherapy
  3. TEGAFUR [Suspect]
     Active Substance: TEGAFUR
     Indication: Gastric cancer
     Dosage: 80 MG, BID, TO SKIN AREA LESS THAN 1.25 - 1.25-1.5 - MORE THAN 1.5 M2
     Route: 048
  4. TEGAFUR [Suspect]
     Active Substance: TEGAFUR
     Indication: Chemotherapy
  5. OTERACIL [Suspect]
     Active Substance: OTERACIL
     Indication: Gastric cancer
     Dosage: 100 MG, BID, TO SKIN AREA LESS THAN 1.25 - 1.25-1.5 ? MORE THAN 1.5 M2
     Route: 048
  6. OTERACIL [Suspect]
     Active Substance: OTERACIL
     Indication: Chemotherapy
  7. GIMERACIL [Suspect]
     Active Substance: GIMERACIL
     Indication: Gastric cancer
     Dosage: 120 MG, BID, TO SKIN AREA LESS THAN 1.25 - 1.25-1.5 ? MORE THAN 1.5 M2
     Route: 048
  8. GIMERACIL [Suspect]
     Active Substance: GIMERACIL
     Indication: Chemotherapy
  9. DEXTROSE [Concomitant]
     Active Substance: DEXTROSE
     Indication: Medication dilution
     Dosage: UNK
     Route: 042

REACTIONS (2)
  - Chronic kidney disease [Not Recovered/Not Resolved]
  - Product use in unapproved indication [Unknown]

NARRATIVE: CASE EVENT DATE: 20191213
